FAERS Safety Report 12525735 (Version 1)
Quarter: 2016Q3

REPORT INFORMATION
  Report Type: Spontaneous
  Country: US (occurrence: US)
  Receive Date: 20160705
  Receipt Date: 20160705
  Transmission Date: 20161109
  Serious: Yes (Hospitalization, Other)
  Sender: FDA-Public Use
  Company Number: US-ZYDUS-011487

PATIENT
  Age: 33 Year
  Sex: Female

DRUGS (7)
  1. VENLAFAXINE/VENLAFAXINE HYDROCHLORIDE [Suspect]
     Active Substance: VENLAFAXINE HYDROCHLORIDE
     Indication: PRODUCT USED FOR UNKNOWN INDICATION
     Route: 065
  2. TEMAZEPAM. [Interacting]
     Active Substance: TEMAZEPAM
     Indication: ANXIETY
     Route: 065
  3. SERTRALINE [Suspect]
     Active Substance: SERTRALINE HYDROCHLORIDE
     Indication: ANXIETY
     Route: 065
  4. VENLAFAXINE/VENLAFAXINE HYDROCHLORIDE [Suspect]
     Active Substance: VENLAFAXINE HYDROCHLORIDE
     Indication: PRODUCT USED FOR UNKNOWN INDICATION
     Route: 065
  5. VENLAFAXINE/VENLAFAXINE HYDROCHLORIDE [Suspect]
     Active Substance: VENLAFAXINE HYDROCHLORIDE
     Indication: PRODUCT USED FOR UNKNOWN INDICATION
     Route: 065
  6. DESVENLAFAXINE. [Concomitant]
     Active Substance: DESVENLAFAXINE
     Indication: PRODUCT USED FOR UNKNOWN INDICATION
     Route: 065
  7. QUETIAPINE/QUETIAPINE FUMARATE [Interacting]
     Active Substance: QUETIAPINE FUMARATE
     Indication: INSOMNIA
     Route: 065

REACTIONS (13)
  - Inappropriate schedule of drug administration [None]
  - Drug interaction [Unknown]
  - Abnormal behaviour [Unknown]
  - Delusion [None]
  - Toxicity to various agents [Unknown]
  - Treatment noncompliance [Unknown]
  - Homicide [Unknown]
  - Mood swings [Unknown]
  - Extra dose administered [Unknown]
  - Physical assault [Unknown]
  - Fatigue [Unknown]
  - Panic attack [Unknown]
  - Thinking abnormal [Unknown]
